FAERS Safety Report 8915248 (Version 1)
Quarter: 2012Q4

REPORT INFORMATION
  Report Type: 
  Country: US (occurrence: US)
  Receive Date: 20121119
  Receipt Date: 20121119
  Transmission Date: 20130627
  Serious: Yes (Other)
  Sender: FDA-Public Use
  Company Number: US-PFIZER INC-2012288422

PATIENT
  Age: 2 Year
  Sex: Female
  Weight: 9.07 kg

DRUGS (1)
  1. EFFEXOR [Suspect]
     Dosage: 37.5 mg, once
     Route: 048
     Dates: start: 20121114, end: 20121114

REACTIONS (4)
  - Accidental exposure to product by child [Unknown]
  - Psychomotor hyperactivity [Recovered/Resolved]
  - Somnolence [Not Recovered/Not Resolved]
  - Abnormal behaviour [Unknown]
